FAERS Safety Report 8779591 (Version 1)
Quarter: 2012Q4

REPORT INFORMATION
  Report Type: 
  Country: BR (occurrence: BR)
  Receive Date: 20120912
  Receipt Date: 20120912
  Transmission Date: 20130627
  Serious: Yes (Hospitalization)
  Sender: FDA-Public Use
  Company Number: BR-BRISTOL-MYERS SQUIBB COMPANY-16935561

PATIENT
  Age: 63 Year
  Sex: Male
  Weight: 72 kg

DRUGS (6)
  1. ONGLYZA TABS 5 MG [Suspect]
     Indication: DIABETES MELLITUS
     Dosage: More than 1 year ago,Dose:5 mg/day in the morning.
     Route: 048
  2. GLIFAGE [Concomitant]
  3. SIMVASTATIN [Concomitant]
     Dosage: 20 Mg At Night
  4. ENALAPRIL [Concomitant]
  5. LOSARTAN [Concomitant]
  6. FINASTERIDE [Concomitant]

REACTIONS (1)
  - Cataract [Recovering/Resolving]
